FAERS Safety Report 14604199 (Version 1)
Quarter: 2018Q1

REPORT INFORMATION
  Report Type: Spontaneous
  Country: CA (occurrence: US)
  Receive Date: 20180306
  Receipt Date: 20180306
  Transmission Date: 20180509
  Serious: No
  Sender: FDA-Public Use
  Company Number: None

PATIENT
  Age: 43 Year
  Sex: Female
  Weight: 58.97 kg

DRUGS (4)
  1. MIRENA [Suspect]
     Active Substance: LEVONORGESTREL
     Dates: start: 20161006, end: 20171005
  2. VITAMIN C [Concomitant]
     Active Substance: ASCORBIC ACID
  3. B-COMPLEX VITAMINS [Concomitant]
  4. IRON SUPPLEMENTS [Concomitant]
     Active Substance: IRON

REACTIONS (3)
  - Anxiety [None]
  - Palpitations [None]
  - Insomnia [None]

NARRATIVE: CASE EVENT DATE: 20170701
